FAERS Safety Report 13644032 (Version 1)
Quarter: 2017Q2

REPORT INFORMATION
  Report Type: Spontaneous
  Country: FR (occurrence: FR)
  Receive Date: 20170612
  Receipt Date: 20170612
  Transmission Date: 20170830
  Serious: Yes (Other)
  Sender: FDA-Public Use
  Company Number: FR-BAYER-2017-109868

PATIENT
  Age: 51 Year
  Sex: Female

DRUGS (1)
  1. MIRENA [Suspect]
     Active Substance: LEVONORGESTREL
     Indication: CONTRACEPTION
     Dosage: 20 MCG/24HR, CONT
     Route: 015
     Dates: start: 2000, end: 2010

REACTIONS (7)
  - Migraine [Recovered/Resolved]
  - Vertigo [Recovered/Resolved]
  - Swelling [Unknown]
  - Arthralgia [Unknown]
  - Acne [Recovering/Resolving]
  - Weight increased [Recovering/Resolving]
  - Type 2 diabetes mellitus [Recovered/Resolved with Sequelae]
